FAERS Safety Report 15851503 (Version 2)
Quarter: 2025Q3

REPORT INFORMATION
  Report Type: Spontaneous
  Country: EU (occurrence: EU)
  Receive Date: 20190122
  Receipt Date: 20250717
  Transmission Date: 20251021
  Serious: Yes (Other)
  Sender: AUROBINDO
  Company Number: EU-AUROBINDO-AUR-APL-2019-002290

PATIENT
  Age: 27 Year
  Sex: Female

DRUGS (1)
  1. TAMSULOSIN [Suspect]
     Active Substance: TAMSULOSIN
     Indication: Urinary retention
     Route: 065

REACTIONS (3)
  - Urinary retention [Unknown]
  - Drug ineffective for unapproved indication [Unknown]
  - Product use issue [Unknown]
